FAERS Safety Report 11242199 (Version 1)
Quarter: 2015Q3

REPORT INFORMATION
  Report Type: Other
  Country: FR (occurrence: FR)
  Receive Date: 20150707
  Receipt Date: 20150707
  Transmission Date: 20151125
  Serious: Yes (Other)
  Sender: FDA-Public Use
  Company Number: FR-LUPIN PHARMACEUTICALS INC.-2015-01662

PATIENT
  Age: 20 Year
  Sex: Male
  Weight: 66 kg

DRUGS (2)
  1. ESCITALOPRAM [Suspect]
     Active Substance: ESCITALOPRAM OXALATE
     Indication: MAJOR DEPRESSION
     Dosage: DOSE PROGRESSIVELY TITRATED FROM 5 MG TO 20 MG
     Route: 065
     Dates: start: 201301, end: 201302
  2. ESCITALOPRAM [Suspect]
     Active Substance: ESCITALOPRAM OXALATE
     Dosage: 30 MG
     Route: 065

REACTIONS (1)
  - Rhabdomyolysis [Recovered/Resolved]
